FAERS Safety Report 16884869 (Version 1)
Quarter: 2019Q4

REPORT INFORMATION
  Report Type: Spontaneous
  Country: US (occurrence: US)
  Receive Date: 20191003
  Receipt Date: 20191003
  Transmission Date: 20200122
  Serious: Yes (Other)
  Sender: FDA-Public Use
  Company Number: None

PATIENT
  Sex: Female

DRUGS (1)
  1. VANCOMYCIN HYDROCHLORIDE FOR INJECTION [Suspect]
     Active Substance: VANCOMYCIN HYDROCHLORIDE
     Dosage: ?          QUANTITY:1 INJECTION(S);?

REACTIONS (3)
  - Manufacturing materials issue [None]
  - Product container issue [None]
  - Skin laceration [None]

NARRATIVE: CASE EVENT DATE: 20190917
